FAERS Safety Report 21295712 (Version 1)
Quarter: 2022Q3

REPORT INFORMATION
  Report Type: Report from Study
  Country: UA (occurrence: UA)
  Receive Date: 20220906
  Receipt Date: 20220906
  Transmission Date: 20221027
  Serious: Yes (Hospitalization, Other)
  Sender: FDA-Public Use
  Company Number: UA-SUN PHARMACEUTICAL INDUSTRIES LTD-2022R1-353235

PATIENT
  Age: 4 Year
  Sex: Female

DRUGS (2)
  1. IBUPROFEN [Suspect]
     Active Substance: IBUPROFEN
     Indication: Pyrexia
     Dosage: 10 MILLIGRAM/KILOGRAM, EVERY 7-8 HOURS
     Route: 065
  2. ACETONE\BORIC ACID\RESORCINOL [Suspect]
     Active Substance: ACETONE\BORIC ACID\RESORCINOL
     Indication: Product used for unknown indication
     Route: 061

REACTIONS (2)
  - Condition aggravated [Unknown]
  - Pyoderma [Recovered/Resolved]
